FAERS Safety Report 11888090 (Version 1)
Quarter: 2016Q1

REPORT INFORMATION
  Report Type: Spontaneous
  Country: US (occurrence: None)
  Receive Date: 20160104
  Receipt Date: 20160104
  Transmission Date: 20160526
  Serious: No
  Sender: FDA-Public Use
  Company Number: None

PATIENT
  Age: 55 Year
  Sex: Male

DRUGS (1)
  1. COPAXONE [Suspect]
     Active Substance: GLATIRAMER ACETATE
     Dates: start: 201509

REACTIONS (4)
  - Flushing [None]
  - Heart rate increased [None]
  - Feeling cold [None]
  - Urticaria [None]

NARRATIVE: CASE EVENT DATE: 20151230
